FAERS Safety Report 9743952 (Version 1)
Quarter: 2013Q4

REPORT INFORMATION
  Report Type: Spontaneous
  Country: US (occurrence: US)
  Receive Date: 20131210
  Receipt Date: 20131210
  Transmission Date: 20140711
  Serious: No
  Sender: FDA-Public Use
  Company Number: US-BIOGENIDEC-2013BI097979

PATIENT
  Sex: Female

DRUGS (1)
  1. TECFIDERA [Suspect]
     Indication: MULTIPLE SCLEROSIS
     Route: 048
     Dates: start: 20130705, end: 20130710

REACTIONS (4)
  - Mood swings [Recovered/Resolved]
  - Tearfulness [Recovered/Resolved]
  - Tachyphrenia [Recovered/Resolved]
  - Morbid thoughts [Recovered/Resolved]
